FAERS Safety Report 5333019-7 (Version None)
Quarter: 2007Q1

REPORT INFORMATION
  Report Type: 
  Country: None (occurrence: None)
  Receive Date: 20070306
  Receipt Date: 20060530
  Transmission Date: 20070707
  Serious: Yes (Other)
  Sender: FDA-Public Use
  Company Number: A03200603561

PATIENT
  Age: 43 Year
  Sex: Female

DRUGS (1)
  1. PLAVIX [Suspect]
     Dosage: 75 MG QD - ORAL
     Route: 048

REACTIONS (4)
  - DYSPNOEA [None]
  - HYPERSENSITIVITY [None]
  - LIP SWELLING [None]
  - RASH [None]
